FAERS Safety Report 16332183 (Version 1)
Quarter: 2019Q2

REPORT INFORMATION
  Report Type: Spontaneous
  Country: US (occurrence: US)
  Receive Date: 20190412
  Receipt Date: 20190412
  Transmission Date: 20190711
  Serious: Yes (Life-Threatening, Hospitalization, Disabling, Other)
  Sender: FDA-Public Use
  Company Number: None

PATIENT
  Age: 39 Year
  Sex: Female
  Weight: 81.65 kg

DRUGS (6)
  1. VITAMIN E [Concomitant]
     Active Substance: .ALPHA.-TOCOPHEROL
  2. PARAGARD T 380A [Suspect]
     Active Substance: COPPER
     Route: 058
     Dates: start: 1997, end: 20190309
  3. MULTIVITAMIN [Concomitant]
     Active Substance: VITAMINS
  4. DEPO-PROVERA [Suspect]
     Active Substance: MEDROXYPROGESTERONE ACETATE
  5. ABILIFY [Concomitant]
     Active Substance: ARIPIPRAZOLE
  6. IRON [Concomitant]
     Active Substance: IRON

REACTIONS (3)
  - Libido decreased [None]
  - Weight increased [None]
  - Pelvic inflammatory disease [None]

NARRATIVE: CASE EVENT DATE: 2019
